FAERS Safety Report 8058018-6 (Version None)
Quarter: 2012Q1

REPORT INFORMATION
  Report Type: 
  Country: None (occurrence: None)
  Receive Date: 20120120
  Receipt Date: 20120111
  Transmission Date: 20120608
  Serious: Yes (Hospitalization)
  Sender: FDA-Public Use
  Company Number: CA-PAR PHARMACEUTICAL, INC-2011SCPR003492

PATIENT

DRUGS (1)
  1. RISPERIDONE [Suspect]
     Indication: PRODUCT USED FOR UNKNOWN INDICATION
     Dosage: UNK, UNKNOWN
     Route: 065

REACTIONS (3)
  - ACCIDENTAL DRUG INTAKE BY CHILD [None]
  - TOXICITY TO VARIOUS AGENTS [None]
  - EXTRAPYRAMIDAL DISORDER [None]
